FAERS Safety Report 23655358 (Version 1)
Quarter: 2024Q1

REPORT INFORMATION
  Report Type: Spontaneous
  Country: GB (occurrence: GB)
  Receive Date: 20240320
  Receipt Date: 20240320
  Transmission Date: 20240409
  Serious: Yes (Hospitalization, Other)
  Sender: FDA-Public Use
  Company Number: GB-009507513-2403GBR002570

PATIENT
  Age: 70 Year
  Sex: Female
  Weight: 82.6 kg

DRUGS (4)
  1. PEMBROLIZUMAB [Suspect]
     Active Substance: PEMBROLIZUMAB
     Indication: Squamous cell carcinoma of head and neck
     Dosage: 200 MILLIGRAM, Q3W
     Route: 042
     Dates: start: 20240122, end: 20240206
  2. ATENOLOL [Concomitant]
     Active Substance: ATENOLOL
     Indication: Hypertension
     Dosage: 25 MILLIGRAM
     Route: 048
     Dates: end: 20240213
  3. ATORVASTATIN [Concomitant]
     Active Substance: ATORVASTATIN
     Indication: Blood cholesterol
     Dosage: 10 MILLIGRAM
     Route: 048
     Dates: end: 20240213
  4. AMLODIPINE [Concomitant]
     Active Substance: AMLODIPINE BESYLATE
     Indication: Hypertension
     Dosage: 5 MILLIGRAM
     Route: 048
     Dates: end: 20240213

REACTIONS (2)
  - Hepatotoxicity [Recovering/Resolving]
  - Immune-mediated enterocolitis [Recovering/Resolving]

NARRATIVE: CASE EVENT DATE: 20240101
